FAERS Safety Report 5309535-0 (Version None)
Quarter: 2007Q2

REPORT INFORMATION
  Report Type: 
  Country: None (occurrence: None)
  Receive Date: 20070427
  Receipt Date: 20060913
  Transmission Date: 20071010
  Serious: No
  Sender: FDA-Public Use
  Company Number: US018136/2006GPS00458

PATIENT
  Age: 58 Year
  Sex: Male
  Weight: 104.5 kg

DRUGS (1)
  1. DEXTROAMPHETAMINE SULFATE [Suspect]
     Indication: NARCOLEPSY
     Route: 048

REACTIONS (1)
  - RASH [None]
